FAERS Safety Report 21996641 (Version 1)
Quarter: 2023Q1

REPORT INFORMATION
  Report Type: Spontaneous
  Country: US (occurrence: US)
  Receive Date: 20230215
  Receipt Date: 20230215
  Transmission Date: 20230418
  Serious: No
  Sender: FDA-Public Use
  Company Number: US-ALLERGAN-2233570US

PATIENT
  Sex: Female

DRUGS (2)
  1. VIIBRYD [Suspect]
     Active Substance: VILAZODONE HYDROCHLORIDE
     Indication: Adjustment disorder
     Dosage: 10 MG
     Dates: start: 20221011
  2. DEPLIN [CALCIUM LEVOMEFOLATE] [Concomitant]
     Indication: Hypovitaminosis
     Dosage: 4 MG
     Route: 048
     Dates: start: 20220926

REACTIONS (1)
  - Off label use [Unknown]
